FAERS Safety Report 16127246 (Version 1)
Quarter: 2019Q1

REPORT INFORMATION
  Report Type: Spontaneous
  Country: US (occurrence: US)
  Receive Date: 20190222
  Receipt Date: 20190222
  Transmission Date: 20190418
  Serious: No
  Sender: FDA-Public Use
  Company Number: None

PATIENT
  Age: 43 Year
  Sex: Female
  Weight: 59.42 kg

DRUGS (1)
  1. TALTZ [Suspect]
     Active Substance: IXEKIZUMAB
     Indication: PSORIATIC ARTHROPATHY
     Dosage: INJECT 80MG (1 PEN) SUBCUTANEOUSLY EVERY 4 WEEKS AS DIRECTED
     Route: 058

REACTIONS (7)
  - Lip blister [None]
  - Blister [None]
  - Rash [None]
  - Peripheral swelling [None]
  - Respiratory tract infection [None]
  - Pruritus [None]
  - Pyrexia [None]
